FAERS Safety Report 13292871 (Version 1)
Quarter: 2017Q1

REPORT INFORMATION
  Report Type: Spontaneous
  Country: FR (occurrence: FR)
  Receive Date: 20170303
  Receipt Date: 20170303
  Transmission Date: 20170428
  Serious: Yes (Hospitalization)
  Sender: FDA-Public Use
  Company Number: FR-SA-2017SA035348

PATIENT
  Age: 54 Year
  Sex: Female

DRUGS (21)
  1. ACUPAN [Suspect]
     Active Substance: NEFOPAM HYDROCHLORIDE
     Indication: PAIN
     Route: 042
     Dates: start: 20170127
  2. DAPTOMYCIN. [Concomitant]
     Active Substance: DAPTOMYCIN
  3. LOVENOX [Suspect]
     Active Substance: ENOXAPARIN SODIUM
     Indication: THROMBOSIS PROPHYLAXIS
     Route: 058
  4. OXYNORM [Suspect]
     Active Substance: OXYCODONE HYDROCHLORIDE
     Indication: PAIN
     Route: 048
     Dates: start: 20170127
  5. ZYVOXID [Concomitant]
     Active Substance: LINEZOLID
  6. PHLOROGLUCINOL [Concomitant]
     Active Substance: PHLOROGLUCINOL
  7. DAFALGAN [Suspect]
     Active Substance: ACETAMINOPHEN
     Indication: PAIN
     Route: 048
  8. CERNEVIT [Concomitant]
     Active Substance: VITAMINS
  9. RIFADINE [Concomitant]
     Active Substance: RIFAMPIN
     Dates: start: 201609
  10. STILNOX [Suspect]
     Active Substance: ZOLPIDEM TARTRATE
     Indication: INSOMNIA
     Dosage: FORM-FILM COATED SCORED TABLETS
     Route: 048
  11. CUBICIN [Suspect]
     Active Substance: DAPTOMYCIN
     Indication: BACTERAEMIA
     Dosage: FORM-POWDER FOR SOLUTION(INFUSION)?STRENGTH: 500 MG
     Route: 042
     Dates: start: 20170131
  12. TOPALGIC LP [Suspect]
     Active Substance: TRAMADOL
     Indication: PAIN
     Dosage: STRENGTH: 100 MG
     Route: 048
  13. AUGMENTIN [Suspect]
     Active Substance: AMOXICILLIN\CLAVULANATE POTASSIUM
     Indication: BACTERAEMIA
     Dosage: 2 G/ 200 MG
     Route: 042
     Dates: start: 20170131
  14. MABELIO [Suspect]
     Active Substance: CEFTOBIPROLE
     Indication: BACTERAEMIA
     Dosage: FORM-POWDER FOR SOLUTION(INFUSION)?STRENGTH: 500 MG
     Route: 042
     Dates: start: 20170127, end: 20170130
  15. PHOCYTAN [Concomitant]
     Active Substance: .ALPHA.-GLUCOSE-1-PHOSPHATE
  16. FEROGRAD VITAMIN C [Concomitant]
  17. PANTOPRAZOLE [Suspect]
     Active Substance: PANTOPRAZOLE SODIUM
     Indication: GASTROOESOPHAGEAL REFLUX DISEASE
     Route: 048
  18. VENLAFAXINE [Suspect]
     Active Substance: VENLAFAXINE HYDROCHLORIDE
     Indication: MAJOR DEPRESSION
     Dosage: DOSE-37.5 MG IN MORNING AND 75 MG IN EVENING
     Route: 048
  19. AMIKACIN MYLAN [Suspect]
     Active Substance: AMIKACIN
     Indication: BACTERAEMIA
     Route: 042
     Dates: start: 20170127, end: 20170130
  20. OLIMEL [Concomitant]
     Active Substance: AMINO ACIDS\DEXTROSE\SOYBEAN OIL
  21. LEVOFLOXACIN. [Concomitant]
     Active Substance: LEVOFLOXACIN
     Dates: start: 201609

REACTIONS (1)
  - Thrombocytopenia [Not Recovered/Not Resolved]

NARRATIVE: CASE EVENT DATE: 20170214
